FAERS Safety Report 6058067-3 (Version None)
Quarter: 2009Q1

REPORT INFORMATION
  Report Type: 
  Country: None (occurrence: None)
  Receive Date: 20090127
  Receipt Date: 20090116
  Transmission Date: 20090719
  Serious: Yes (Other)
  Sender: FDA-Public Use
  Company Number: CHPA2009US00630

PATIENT
  Age: 41 Year
  Sex: Female

DRUGS (1)
  1. EXCEDRIN (MIGRAINE) [Suspect]
     Indication: ARTHRALGIA
     Dosage: UNK, UNK, ORAL
     Route: 048

REACTIONS (1)
  - HAEMOPTYSIS [None]
